FAERS Safety Report 10484381 (Version 1)
Quarter: 2014Q3

REPORT INFORMATION
  Report Type: Other
  Country: DE (occurrence: DE)
  Receive Date: 20140930
  Receipt Date: 20140930
  Transmission Date: 20150326
  Serious: Yes (Congenital Anomaly)
  Sender: FDA-Public Use
  Company Number: DE-MYLANLABS-2014M1005501

PATIENT

DRUGS (10)
  1. PREDNISOLON [Concomitant]
     Active Substance: PREDNISOLONE
     Indication: MIXED CONNECTIVE TISSUE DISEASE
     Dosage: 2 [MG/D ]
     Route: 064
     Dates: start: 20130711, end: 20140314
  2. QUENSYL [Suspect]
     Active Substance: HYDROXYCHLOROQUINE
     Indication: MIXED CONNECTIVE TISSUE DISEASE
     Dosage: 200 [MG/D ]
     Route: 064
     Dates: start: 20130711, end: 20140314
  3. METHYLDOPA. [Concomitant]
     Active Substance: METHYLDOPA
     Indication: GESTATIONAL HYPERTENSION
     Dosage: 750 [MG/D ]/ 3 X 260MG/D AND 3 X 125MG/D EVRY OTHER DAY
     Route: 064
  4. CLEXANE [Concomitant]
     Active Substance: ENOXAPARIN SODIUM
     Indication: FACTOR V LEIDEN MUTATION
     Dosage: 40 [MG/D ]/ STARTED 3-4 DAYS BEFORE DELIVERY BECAUSE OF FACTOR V MUTATION (HETROZYGOTE)
     Route: 064
  5. FOLIO FORTE [Concomitant]
     Active Substance: FOLIC ACID\VITAMINS
     Indication: PROPHYLAXIS OF NEURAL TUBE DEFECT
     Dosage: 0.8 MG, QD (0.8 [MG/D ])
     Route: 064
     Dates: start: 20130711, end: 20140314
  6. ASPIRIN. [Concomitant]
     Active Substance: ASPIRIN
     Indication: MIXED CONNECTIVE TISSUE DISEASE
     Dosage: 100 [MG/D ]
     Route: 064
  7. PARACETAMOL [Concomitant]
     Active Substance: ACETAMINOPHEN
     Indication: MIGRAINE
     Dosage: AS NEEDED
     Route: 064
  8. URSODEOXYCHOLIC ACID [Concomitant]
     Active Substance: URSODIOL
     Indication: CHOLESTASIS OF PREGNANCY
     Dosage: 750 [MG/D ]
     Route: 064
     Dates: start: 20140224, end: 20140314
  9. AZATHIOPRINE. [Suspect]
     Active Substance: AZATHIOPRINE
     Indication: MIXED CONNECTIVE TISSUE DISEASE
     Dosage: 100 [MG/D ]
     Route: 064
     Dates: start: 20130711, end: 20140314
  10. MISOPROSTOL. [Concomitant]
     Active Substance: MISOPROSTOL
     Indication: LABOUR INDUCTION
     Dosage: UNK
     Route: 064
     Dates: start: 20140314, end: 20140314

REACTIONS (2)
  - Haemangioma [Not Recovered/Not Resolved]
  - Foetal exposure during pregnancy [Unknown]

NARRATIVE: CASE EVENT DATE: 20140314
